FAERS Safety Report 6865662-8 (Version None)
Quarter: 2010Q3

REPORT INFORMATION
  Report Type: 
  Country: None (occurrence: None)
  Receive Date: 20100721
  Receipt Date: 20080430
  Transmission Date: 20110219
  Serious: No
  Sender: FDA-Public Use
  Company Number: US-PFIZER INC-2008038492

PATIENT
  Sex: Female
  Weight: 40.9 kg

DRUGS (4)
  1. CHANTIX [Suspect]
     Indication: SMOKING CESSATION THERAPY
     Dates: start: 20080421
  2. THEOPHYLLINE [Concomitant]
     Indication: ASTHMA
  3. MONTELUKAST SODIUM [Concomitant]
  4. ALBUTEROL [Concomitant]

REACTIONS (1)
  - NAUSEA [None]
